FAERS Safety Report 9410452 (Version 1)
Quarter: 2013Q3

REPORT INFORMATION
  Report Type: Spontaneous
  Country: MX (occurrence: MX)
  Receive Date: 20130719
  Receipt Date: 20130719
  Transmission Date: 20140515
  Serious: Yes (Hospitalization, Other)
  Sender: FDA-Public Use
  Company Number: MX-009507513-1307MEX007797

PATIENT
  Age: 72 Year
  Sex: Male
  Weight: 72 kg

DRUGS (2)
  1. JANUMET [Suspect]
     Indication: DIABETES MELLITUS
     Dosage: 1 TABLET EVERY MORNING
     Route: 048
     Dates: start: 2010, end: 201306
  2. ALMETEC (OLMESARTAN MEDOXOMIL) [Suspect]
     Indication: HYPERTENSION
     Dosage: UNK
     Route: 048
     Dates: end: 201306

REACTIONS (4)
  - Hyponatraemia [Recovered/Resolved]
  - Inappropriate schedule of drug administration [Unknown]
  - Somnolence [Recovered/Resolved]
  - Loss of consciousness [Recovered/Resolved]
